FAERS Safety Report 22113878 (Version 2)
Quarter: 2023Q2

REPORT INFORMATION
  Report Type: Spontaneous
  Country: US (occurrence: None)
  Receive Date: 20230320
  Receipt Date: 20230412
  Transmission Date: 20230722
  Serious: Yes (Death, Life-Threatening, Other)
  Sender: FDA-Public Use
  Company Number: US-MLMSERVICE-20230303-4140362-2

PATIENT
  Age: 12 Year
  Sex: Male
  Weight: 33 kg

DRUGS (9)
  1. CELECOXIB [Suspect]
     Active Substance: CELECOXIB
     Indication: Metastases to bone
     Dosage: DAYS 1-42
     Dates: start: 20060914, end: 2006
  2. CELECOXIB [Suspect]
     Active Substance: CELECOXIB
     Indication: Neuroblastoma recurrent
     Dosage: DAYS 1-42
     Route: 048
     Dates: start: 2006, end: 20061106
  3. CELECOXIB [Suspect]
     Active Substance: CELECOXIB
     Indication: Retroperitoneal cancer
  4. CYTOXAN [Concomitant]
     Active Substance: CYCLOPHOSPHAMIDE
     Indication: Retroperitoneal cancer
     Route: 048
     Dates: start: 20060123, end: 20060216
  5. CYTOXAN [Concomitant]
     Active Substance: CYCLOPHOSPHAMIDE
     Indication: Metastases to bone
     Route: 048
     Dates: start: 20060216, end: 20060511
  6. CYTOXAN [Concomitant]
     Active Substance: CYCLOPHOSPHAMIDE
     Indication: Neuroblastoma recurrent
  7. ETOPOSIDE [Concomitant]
     Active Substance: ETOPOSIDE
     Indication: Neuroblastoma recurrent
     Route: 048
     Dates: start: 20061105
  8. ETOPOSIDE [Concomitant]
     Active Substance: ETOPOSIDE
     Indication: Metastases to bone
  9. ETOPOSIDE [Concomitant]
     Active Substance: ETOPOSIDE
     Indication: Retroperitoneal cancer

REACTIONS (1)
  - Gastritis haemorrhagic [Fatal]
